FAERS Safety Report 24138752 (Version 1)
Quarter: 2024Q3

REPORT INFORMATION
  Report Type: Report from Study
  Country: GR (occurrence: None)
  Receive Date: 20240725
  Receipt Date: 20240725
  Transmission Date: 20241016
  Serious: Yes (Congenital Anomaly)
  Sender: UNICHEM
  Company Number: GR-Unichem Pharmaceuticals (USA) Inc-UCM202407-000917

PATIENT
  Weight: 1.67 kg

DRUGS (5)
  1. ALLOPURINOL [Suspect]
     Active Substance: ALLOPURINOL
     Indication: Foetal exposure during pregnancy
     Dosage: STARTED AT WEEK 23
     Route: 064
  2. DEXAMETHASONE [Concomitant]
     Active Substance: DEXAMETHASONE
     Indication: Foetal exposure during pregnancy
     Dosage: UNKNOWN
     Route: 064
  3. DOXORUBICIN [Concomitant]
     Active Substance: DOXORUBICIN
     Indication: Foetal exposure during pregnancy
     Dosage: UNKNOWN
     Route: 064
  4. FILGRASTIM [Concomitant]
     Active Substance: FILGRASTIM
     Indication: Foetal exposure during pregnancy
     Dosage: UNKNOWN
     Route: 064
  5. VINCRISTINE [Concomitant]
     Active Substance: VINCRISTINE
     Indication: Foetal exposure during pregnancy
     Dosage: UNKNOWN
     Route: 064

REACTIONS (2)
  - Congenital anomaly [Unknown]
  - Foetal exposure during pregnancy [Unknown]
